FAERS Safety Report 6176619-7 (Version None)
Quarter: 2009Q2

REPORT INFORMATION
  Report Type: 
  Country: None (occurrence: None)
  Receive Date: 20090501
  Receipt Date: 20090430
  Transmission Date: 20091009
  Serious: No
  Sender: FDA-Public Use
  Company Number: US-B.I. PHARMACEUTICALS,INC./RIDGEFIELD-2009-BP-03779BP

PATIENT
  Age: 42 Year
  Sex: Female
  Weight: 66.68 kg

DRUGS (4)
  1. VIRAMUNE [Suspect]
     Indication: ACQUIRED IMMUNODEFICIENCY SYNDROME
     Route: 048
     Dates: start: 20090301, end: 20090325
  2. VIRAMUNE [Suspect]
     Indication: HIV INFECTION
  3. BACTRIM [Suspect]
     Dates: start: 20090318, end: 20090325
  4. COMBIVIR [Concomitant]
     Indication: ACQUIRED IMMUNODEFICIENCY SYNDROME
     Dates: start: 20090301, end: 20090325

REACTIONS (5)
  - LIP SWELLING [None]
  - MALAISE [None]
  - PYREXIA [None]
  - RASH [None]
  - STOMATITIS [None]
